FAERS Safety Report 25278789 (Version 1)
Quarter: 2025Q2

REPORT INFORMATION
  Report Type: Spontaneous
  Country: US (occurrence: US)
  Receive Date: 20250507
  Receipt Date: 20250507
  Transmission Date: 20250716
  Serious: No
  Sender: CHATTEM
  Company Number: US-OPELLA-2025OHG013724

PATIENT
  Sex: Male

DRUGS (1)
  1. ALLEGRA HIVES 24HR [Suspect]
     Active Substance: FEXOFENADINE HYDROCHLORIDE
     Indication: Urticaria

REACTIONS (3)
  - Urticaria [Unknown]
  - Condition aggravated [Unknown]
  - Drug ineffective [Unknown]
